FAERS Safety Report 10425229 (Version 16)
Quarter: 2018Q3

REPORT INFORMATION
  Report Type: Spontaneous
  Country: US (occurrence: US)
  Receive Date: 20140902
  Receipt Date: 20180712
  Transmission Date: 20181010
  Serious: Yes (Other)
  Sender: FDA-Public Use
  Company Number: US-PFIZER INC-2014237734

PATIENT
  Age: 51 Year
  Sex: Female

DRUGS (4)
  1. PERCOCET [Concomitant]
     Active Substance: ACETAMINOPHEN\OXYCODONE HYDROCHLORIDE
     Dosage: [OXYCODONE HYDROCHLORIDE 5, PARACETAMOL 325] PER 8HRS AS NEEDED
     Dates: start: 20140502
  2. VALIUM [Concomitant]
     Active Substance: DIAZEPAM
     Dosage: 5 MG (1/2 OF 10MG), TWICE OR ONCE DAILY, AS NEEDED
     Dates: start: 20140502
  3. LYRICA [Suspect]
     Active Substance: PREGABALIN
     Indication: COMPLEX REGIONAL PAIN SYNDROME
     Dosage: 75 MG, 2X/DAY
     Route: 048
  4. LYRICA [Suspect]
     Active Substance: PREGABALIN
     Indication: PAIN

REACTIONS (6)
  - Paralysis [Unknown]
  - Nuchal rigidity [Unknown]
  - Tremor [Unknown]
  - Sleep disorder [Unknown]
  - Road traffic accident [Unknown]
  - Accident [Unknown]

NARRATIVE: CASE EVENT DATE: 20140502
